FAERS Safety Report 22026269 (Version 3)
Quarter: 2023Q1

REPORT INFORMATION
  Report Type: Report from Study
  Country: FR (occurrence: FR)
  Receive Date: 20230223
  Receipt Date: 20230327
  Transmission Date: 20230418
  Serious: Yes (Hospitalization)
  Sender: FDA-Public Use
  Company Number: FR-Merz Pharmaceuticals GmbH-23-00419

PATIENT
  Age: 73 Year
  Sex: Male
  Weight: 74 kg

DRUGS (25)
  1. XEOMIN [Suspect]
     Active Substance: INCOBOTULINUMTOXINA
     Indication: Arrhythmia prophylaxis
     Route: 016
     Dates: start: 20220616, end: 20220616
  2. PLACEBO [Suspect]
     Active Substance: UNSPECIFIED INGREDIENT
     Indication: Arrhythmia prophylaxis
     Route: 016
     Dates: start: 20220616, end: 20220616
  3. BISOPROLOL [Concomitant]
     Active Substance: BISOPROLOL
     Indication: Coronary artery disease
     Dosage: 5 MG
     Route: 048
     Dates: start: 20220617, end: 202206
  4. BISOPROLOL [Concomitant]
     Active Substance: BISOPROLOL
     Dosage: 2.5 MG
     Route: 048
     Dates: start: 202206
  5. AMLODIPINE BESYLATE [Concomitant]
     Active Substance: AMLODIPINE BESYLATE
     Indication: Hypertension
     Dosage: 5 MG
     Route: 048
     Dates: start: 20220618
  6. LORAZEPAM [Concomitant]
     Active Substance: LORAZEPAM
     Indication: Anxiety
     Dosage: 2.5 MG
     Route: 048
     Dates: start: 20220617
  7. OXAZEPAM [Concomitant]
     Active Substance: OXAZEPAM
     Indication: Agitation
     Dosage: 10 MG
     Route: 048
     Dates: start: 20220617
  8. KARDEGIC [Concomitant]
     Active Substance: ASPIRIN DL-LYSINE
     Indication: Coronary artery disease
     Dosage: 75 MG
     Route: 048
     Dates: start: 20220101
  9. PLAVIX [Concomitant]
     Active Substance: CLOPIDOGREL BISULFATE
     Indication: Coronary artery disease
     Dosage: 75 MG
     Route: 048
     Dates: start: 20220618
  10. PLAVIX [Concomitant]
     Active Substance: CLOPIDOGREL BISULFATE
     Indication: Arterial disorder
  11. JANUMET [Concomitant]
     Active Substance: METFORMIN HYDROCHLORIDE\SITAGLIPTIN PHOSPHATE
     Indication: Diabetes mellitus
     Dosage: 1 TABLET
     Route: 048
     Dates: start: 20220618
  12. JANUMET [Concomitant]
     Active Substance: METFORMIN HYDROCHLORIDE\SITAGLIPTIN PHOSPHATE
     Dosage: 2 TABLET
     Route: 048
     Dates: start: 2022
  13. ROSUVASTATIN [Concomitant]
     Active Substance: ROSUVASTATIN
     Indication: Coronary artery disease
     Dosage: 10 MG
     Route: 048
     Dates: start: 20220101, end: 2022
  14. ROSUVASTATIN [Concomitant]
     Active Substance: ROSUVASTATIN
     Dosage: 20 MG
     Route: 048
     Dates: start: 2022
  15. OXYCODONE HYDROCHLORIDE [Concomitant]
     Active Substance: OXYCODONE HYDROCHLORIDE
     Indication: Pain
     Dosage: 30 MG
     Route: 048
     Dates: start: 20220617
  16. TRAMADOL [Concomitant]
     Active Substance: TRAMADOL
     Indication: Pain
     Dosage: 200 MG
     Route: 048
     Dates: start: 20220618
  17. LANSOPRAZOLE [Concomitant]
     Active Substance: LANSOPRAZOLE
     Indication: Gastrointestinal disorder prophylaxis
     Dosage: 30 MG
     Route: 048
     Dates: start: 20220617
  18. LOVENOX [Concomitant]
     Active Substance: ENOXAPARIN SODIUM
     Indication: Thrombosis prophylaxis
     Dosage: 4000 UNITS
     Route: 058
     Dates: start: 20220617
  19. HALDOL [Concomitant]
     Active Substance: HALOPERIDOL
     Indication: Agitation
     Dosage: 30 DROPS
     Route: 048
     Dates: start: 20220617
  20. ASPIRIN [Concomitant]
     Active Substance: ASPIRIN
     Dosage: 100 MG
  21. CANDESARTAN [Concomitant]
     Active Substance: CANDESARTAN
     Dosage: 16 MG
  22. ZOLPIDEM [Concomitant]
     Active Substance: ZOLPIDEM TARTRATE
  23. LORAZEPAM [Concomitant]
     Active Substance: LORAZEPAM
     Dosage: 2 MG
  24. CHOLECALCIFEROL [Concomitant]
     Active Substance: CHOLECALCIFEROL
  25. SILDENAFIL [Concomitant]
     Active Substance: SILDENAFIL

REACTIONS (4)
  - Arrhythmia supraventricular [Recovered/Resolved]
  - Pulmonary oedema [Recovered/Resolved]
  - Fall [Recovering/Resolving]
  - Confusional state [Recovering/Resolving]

NARRATIVE: CASE EVENT DATE: 20220618
